FAERS Safety Report 11320413 (Version 1)
Quarter: 2015Q3

REPORT INFORMATION
  Report Type: Spontaneous
  Country: US (occurrence: US)
  Receive Date: 20150729
  Receipt Date: 20150729
  Transmission Date: 20151125
  Serious: Yes (Other)
  Sender: FDA-Public Use
  Company Number: US-BAXTER-2015BAX040239

PATIENT
  Sex: Female

DRUGS (1)
  1. CYTOXAN [Suspect]
     Active Substance: CYCLOPHOSPHAMIDE
     Indication: PRODUCT USED FOR UNKNOWN INDICATION
     Route: 065

REACTIONS (6)
  - Muscular weakness [Unknown]
  - Confusional state [Unknown]
  - Multiple sclerosis [Unknown]
  - Tremor [Unknown]
  - Urinary tract infection [Unknown]
  - Inflammation [Unknown]
